FAERS Safety Report 7978133 (Version 6)
Quarter: 2013Q4

REPORT INFORMATION
  Report Type: Report from Study
  Country: BE (occurrence: BE)
  Receive Date: 20110607
  Receipt Date: 20131021
  Transmission Date: 20140711
  Serious: Yes (Death, Hospitalization, Other)
  Sender: FDA-Public Use
  Company Number: BE-CELGENEUS-013-50794-11043519

PATIENT
  Age: 67 Year
  Sex: Male

DRUGS (19)
  1. VIDAZA [Suspect]
     Indication: ACUTE MYELOID LEUKAEMIA
     Route: 050
     Dates: end: 20110330
  2. DIFLUCAN [Concomitant]
     Indication: INFECTION PROPHYLAXIS
     Dosage: 200 MILLIGRAM
     Route: 065
     Dates: start: 20110216
  3. EMCONCOR [Concomitant]
     Indication: PROPHYLAXIS
     Dosage: 2.5 MILLIGRAM
     Route: 065
     Dates: start: 20100623
  4. PERINDOPRIL [Concomitant]
     Indication: MYOCARDIAL INFARCTION
     Dosage: 2 MILLIGRAM
     Route: 065
     Dates: start: 20080624
  5. ASPEGIC [Concomitant]
     Indication: MYOCARDIAL INFARCTION
     Dosage: 100 MILLIGRAM
     Route: 065
     Dates: start: 200805
  6. NEXIUM [Concomitant]
     Indication: DYSPHAGIA
     Dosage: 20 MILLIGRAM
     Route: 065
     Dates: start: 20110214
  7. NEXIUM [Concomitant]
     Indication: HIATUS HERNIA
  8. LYSANXIA [Concomitant]
     Indication: ANXIETY
     Dosage: 15 DROPS
     Route: 065
     Dates: start: 2011
  9. GLUCOPHAGE [Concomitant]
     Indication: DIABETES MELLITUS
     Dosage: 1500 MILLIGRAM
     Route: 065
     Dates: start: 20110215
  10. MEDROL [Concomitant]
     Indication: PYREXIA
     Dosage: 8 MILLIGRAM
     Route: 065
     Dates: start: 20110215
  11. ENOXAPARIN [Concomitant]
     Indication: PRODUCT USED FOR UNKNOWN INDICATION
     Route: 058
     Dates: start: 20110126
  12. GLICLAZIDE [Concomitant]
     Indication: PRODUCT USED FOR UNKNOWN INDICATION
     Route: 065
     Dates: start: 20110216
  13. MOVICOL [Concomitant]
     Indication: PRODUCT USED FOR UNKNOWN INDICATION
     Route: 065
     Dates: start: 20110214
  14. RED BLOOD CELLS [Concomitant]
     Indication: PRODUCT USED FOR UNKNOWN INDICATION
     Route: 065
     Dates: start: 20110324, end: 20110324
  15. RED BLOOD CELLS [Concomitant]
     Route: 065
     Dates: start: 20110329, end: 20110329
  16. RED BLOOD CELLS [Concomitant]
     Route: 065
     Dates: start: 20110407, end: 20110407
  17. PLATELETS [Concomitant]
     Indication: PRODUCT USED FOR UNKNOWN INDICATION
     Route: 065
     Dates: start: 20110407, end: 20110407
  18. CEFEPIME [Concomitant]
     Indication: PRODUCT USED FOR UNKNOWN INDICATION
     Route: 065
     Dates: start: 20110326
  19. FLUCONAZOL [Concomitant]
     Indication: PRODUCT USED FOR UNKNOWN INDICATION
     Route: 065
     Dates: start: 20110216

REACTIONS (9)
  - Aspergillus infection [Fatal]
  - Diabetes mellitus inadequate control [Recovered/Resolved]
  - Diabetes mellitus inadequate control [Recovered/Resolved]
  - Acute myeloid leukaemia [Fatal]
  - Fatigue [Not Recovered/Not Resolved]
  - Pyrexia [Recovered/Resolved]
  - Pyrexia [Not Recovered/Not Resolved]
  - Nausea [Recovered/Resolved]
  - Weight decreased [Not Recovered/Not Resolved]
